FAERS Safety Report 22236108 (Version 1)
Quarter: 2023Q2

REPORT INFORMATION
  Report Type: Spontaneous
  Country: US (occurrence: US)
  Receive Date: 20230420
  Receipt Date: 20230420
  Transmission Date: 20230721
  Serious: No
  Sender: FDA-Public Use
  Company Number: US-AMYLYX PHARMACEUTICALS, INC-AMX-002156

PATIENT
  Age: 60 Year
  Sex: Female

DRUGS (1)
  1. RELYVRIO [Suspect]
     Active Substance: SODIUM PHENYLBUTYRATE\TAURURSODIOL
     Indication: Amyotrophic lateral sclerosis
     Dosage: 1 SACHET, QD
     Route: 048
     Dates: start: 20230323

REACTIONS (7)
  - Dysphagia [Unknown]
  - Oropharyngeal discomfort [Unknown]
  - Throat irritation [Unknown]
  - Pain [Unknown]
  - Oesophageal spasm [Unknown]
  - Incorrect dose administered [Unknown]
  - Product use complaint [Unknown]
